FAERS Safety Report 8188295-2 (Version None)
Quarter: 2012Q1

REPORT INFORMATION
  Report Type: 
  Country: None (occurrence: None)
  Receive Date: 20120306
  Receipt Date: 20120223
  Transmission Date: 20120608
  Serious: Yes (Other)
  Sender: FDA-Public Use
  Company Number: US-ELI_LILLY_AND_COMPANY-US201202007146

PATIENT
  Age: 71 Year
  Sex: Female

DRUGS (1)
  1. FORTEO [Suspect]
     Dosage: UNK

REACTIONS (5)
  - MYALGIA [None]
  - RHINORRHOEA [None]
  - BONE PAIN [None]
  - LOSS OF CONSCIOUSNESS [None]
  - DIZZINESS [None]
